FAERS Safety Report 5714752-1 (Version None)
Quarter: 2008Q2

REPORT INFORMATION
  Report Type: 
  Country: None (occurrence: None)
  Receive Date: 20080423
  Receipt Date: 20080421
  Transmission Date: 20081010
  Serious: Yes (Hospitalization)
  Sender: FDA-Public Use
  Company Number: FR-BRISTOL-MYERS SQUIBB COMPANY-14159719

PATIENT
  Age: 59 Year
  Sex: Female

DRUGS (4)
  1. SUSTIVA [Suspect]
     Dosage: ALSO TAKEN AS CONMED.
     Dates: start: 20080121, end: 20080311
  2. NICARDIPINE HCL [Suspect]
     Dates: start: 20080229, end: 20080311
  3. BACTRIM [Concomitant]
  4. TRUVADA [Concomitant]
     Dates: start: 20080121

REACTIONS (6)
  - CHILLS [None]
  - CHOLELITHIASIS [None]
  - HAEMOGLOBINURIA [None]
  - HEPATITIS [None]
  - HYPERTENSION [None]
  - PROTEINURIA [None]
